FAERS Safety Report 17584915 (Version 1)
Quarter: 2020Q1

REPORT INFORMATION
  Report Type: Spontaneous
  Country: US (occurrence: US)
  Receive Date: 20200325
  Receipt Date: 20200325
  Transmission Date: 20200409
  Serious: Yes (Other)
  Sender: FDA-Public Use
  Company Number: None

PATIENT
  Age: 93 Year
  Sex: Female
  Weight: 41.07 kg

DRUGS (19)
  1. TEMOZOLOMIDE. [Suspect]
     Active Substance: TEMOZOLOMIDE
     Indication: ENDOCRINE PANCREATIC DISORDER
     Route: 048
     Dates: start: 20200305
  2. DILTIAZEM. [Concomitant]
     Active Substance: DILTIAZEM
  3. LEVOTHYROXINE. [Concomitant]
     Active Substance: LEVOTHYROXINE
  4. VITAMIN D3 [Concomitant]
     Active Substance: CHOLECALCIFEROL
  5. LUTEIN 20 [Concomitant]
  6. LIDOCAINE/PRILOCAINE [Concomitant]
     Active Substance: LIDOCAINE\PRILOCAINE
  7. PLAVIX [Concomitant]
     Active Substance: CLOPIDOGREL BISULFATE
  8. LIDOCAINE. [Concomitant]
     Active Substance: LIDOCAINE
  9. PRESERVISION AREDS [Concomitant]
     Active Substance: MINERALS\VITAMINS
  10. MIRALAX [Concomitant]
     Active Substance: POLYETHYLENE GLYCOL 3350
  11. ASCORBIC ACID. [Concomitant]
     Active Substance: ASCORBIC ACID
  12. LABETAOLOL [Concomitant]
  13. PROBIOTIC [Concomitant]
     Active Substance: PROBIOTICS NOS
  14. MULTIVITAMIN [Concomitant]
     Active Substance: VITAMINS
  15. QUESTRAN [Concomitant]
     Active Substance: CHOLESTYRAMINE
  16. TEMOZOLOMIDE. [Suspect]
     Active Substance: TEMOZOLOMIDE
     Indication: PANCREATIC CARCINOMA
     Route: 048
     Dates: start: 20200305
  17. ASPIRIN. [Concomitant]
     Active Substance: ASPIRIN
  18. CLONIDINE. [Concomitant]
     Active Substance: CLONIDINE
  19. LOSARTAN. [Concomitant]
     Active Substance: LOSARTAN

REACTIONS (2)
  - Muscular weakness [None]
  - Peripheral coldness [None]

NARRATIVE: CASE EVENT DATE: 20200325
